FAERS Safety Report 7480663-7 (Version None)
Quarter: 2011Q2

REPORT INFORMATION
  Report Type: 
  Country: None (occurrence: None)
  Receive Date: 20110504
  Receipt Date: 20110426
  Transmission Date: 20111010
  Serious: Yes (Hospitalization, Other)
  Sender: FDA-Public Use
  Company Number: 2010BI037712

PATIENT
  Age: 73 Year
  Sex: Male
  Weight: 60 kg

DRUGS (9)
  1. BAKTAR (BACTRIM[SULFAMETHOXAZOLE, TRIMETHOPRIM]) [Concomitant]
  2. IBRITMOMAB TIUXETAN + INDIUM (111 IN) (BRITUMOMAB TIUXETAN) [Suspect]
     Indication: FOLLICLE CENTRE LYMPHOMA, FOLLICULAR GRADE I, II, III STAGE I
     Dosage: 130 MGQ, QD, IV
     Route: 042
     Dates: start: 20090811, end: 20090811
  3. RITUXIMAB (RITUXIMAB) [Suspect]
     Indication: FOLLICLE CENTRE LYMPHOMA, FOLLICULAR GRADE I, II, III STAGE I
     Dosage: 250 MG/M2, QD, IV DRIP
     Route: 041
     Dates: start: 20090819, end: 20090819
  4. METHYCOBAL (MECOBALAMIN) [Concomitant]
  5. ANTIHISTAMINES [Concomitant]
  6. ISONIAZID [Concomitant]
  7. ZEVALIN [Suspect]
     Indication: FOLLICLE CENTRE LYMPHOMA, FOLLICULAR GRADE I, II, III STAGE I
     Dosage: 889 MBQ, QD, IV
     Route: 042
     Dates: start: 20090819, end: 20090819
  8. RITUXIMAB (RITUXIMAB) [Suspect]
     Indication: FOLLICLE CENTRE LYMPHOMA, FOLLICULAR GRADE I, II, III STAGE I
     Dosage: 250 MG/M2, QD, IV DRIP
     Route: 041
     Dates: start: 20090811, end: 20090811
  9. CORTICOSTEROIDS [Concomitant]

REACTIONS (3)
  - WHITE BLOOD CELL COUNT DECREASED [None]
  - PLATELET COUNT DECREASED [None]
  - ILEUS [None]
